FAERS Safety Report 13760309 (Version 1)
Quarter: 2017Q3

REPORT INFORMATION
  Report Type: Spontaneous
  Country: AT (occurrence: AT)
  Receive Date: 20170717
  Receipt Date: 20170717
  Transmission Date: 20171127
  Serious: Yes (Hospitalization)
  Sender: FDA-Public Use
  Company Number: AT-FRESENIUS KABI-FK201706057

PATIENT
  Age: 46 Year
  Sex: Male

DRUGS (34)
  1. LEVOFLOXACIN (MANUFACTURER UNKNOWN) [Suspect]
     Active Substance: LEVOFLOXACIN
     Indication: SYSTEMIC INFLAMMATORY RESPONSE SYNDROME
     Route: 065
  2. LINEZOLID (MANUFACTURER UNKNOWN) [Suspect]
     Active Substance: LINEZOLID
     Indication: ACUTE RESPIRATORY DISTRESS SYNDROME
  3. CEFEPIME (MANUFACTURER UNKNOWN) [Suspect]
     Active Substance: CEFEPIME HYDROCHLORIDE
     Indication: SYSTEMIC INFLAMMATORY RESPONSE SYNDROME
     Route: 065
  4. CEFEPIME (MANUFACTURER UNKNOWN) [Suspect]
     Active Substance: CEFEPIME HYDROCHLORIDE
     Indication: ACUTE RESPIRATORY DISTRESS SYNDROME
  5. FOSCARNET [Concomitant]
     Active Substance: FOSCARNET
     Indication: PNEUMONITIS
  6. CASPOFUNGIN [Concomitant]
     Active Substance: CASPOFUNGIN
     Indication: PNEUMONITIS
  7. MEROPENEM (MANUFACTURER UNKNOWN) [Suspect]
     Active Substance: MEROPENEM
     Indication: ACUTE RESPIRATORY DISTRESS SYNDROME
  8. AMPHOTERICIN B. [Concomitant]
     Active Substance: AMPHOTERICIN B
     Indication: SYSTEMIC INFLAMMATORY RESPONSE SYNDROME
  9. ACICLOVIR [Concomitant]
     Active Substance: ACYCLOVIR
     Indication: SYSTEMIC INFLAMMATORY RESPONSE SYNDROME
  10. ANIDULAFUNGIN [Concomitant]
     Active Substance: ANIDULAFUNGIN
     Indication: SYSTEMIC INFLAMMATORY RESPONSE SYNDROME
  11. ACICLOVIR [Concomitant]
     Active Substance: ACYCLOVIR
     Indication: ACUTE RESPIRATORY DISTRESS SYNDROME
  12. GANCICLOVIR. [Concomitant]
     Active Substance: GANCICLOVIR
     Indication: SYSTEMIC INFLAMMATORY RESPONSE SYNDROME
  13. AMIKACIN (MANUFACTURER UNKNOWN) [Suspect]
     Active Substance: AMIKACIN
     Indication: ACUTE RESPIRATORY DISTRESS SYNDROME
  14. CIPROFLOXACIN (MANUFACTURER UNKNOWN) [Suspect]
     Active Substance: CIPROFLOXACIN
     Indication: SYSTEMIC INFLAMMATORY RESPONSE SYNDROME
     Route: 065
  15. CEFTAZIDIME (MANUFACTURER UNKNOWN) [Suspect]
     Active Substance: CEFTAZIDIME
     Indication: SYSTEMIC INFLAMMATORY RESPONSE SYNDROME
     Route: 065
  16. MEROPENEM (MANUFACTURER UNKNOWN) [Suspect]
     Active Substance: MEROPENEM
     Indication: SYSTEMIC INFLAMMATORY RESPONSE SYNDROME
     Route: 065
  17. AMPHOTERICIN B. [Concomitant]
     Active Substance: AMPHOTERICIN B
     Indication: ACUTE RESPIRATORY DISTRESS SYNDROME
  18. CIPROFLOXACIN (MANUFACTURER UNKNOWN) [Suspect]
     Active Substance: CIPROFLOXACIN
     Indication: ACUTE RESPIRATORY DISTRESS SYNDROME
  19. PIPERACILLIN/TAZOBACTAM (MANUFACTURER UNKNOWN) [Suspect]
     Active Substance: PIPERACILLIN SODIUM\TAZOBACTAM SODIUM
     Indication: SYSTEMIC INFLAMMATORY RESPONSE SYNDROME
     Route: 065
  20. PREDNISOLONE. [Suspect]
     Active Substance: PREDNISOLONE
     Indication: ACUTE RESPIRATORY DISTRESS SYNDROME
  21. LEVOFLOXACIN (MANUFACTURER UNKNOWN) [Suspect]
     Active Substance: LEVOFLOXACIN
     Indication: ACUTE RESPIRATORY DISTRESS SYNDROME
  22. RIFAMPIN (MANUFACTURER UNKNOWN) [Suspect]
     Active Substance: RIFAMPIN
     Indication: SYSTEMIC INFLAMMATORY RESPONSE SYNDROME
     Route: 065
  23. RIFAMPIN (MANUFACTURER UNKNOWN) [Suspect]
     Active Substance: RIFAMPIN
     Indication: ACUTE RESPIRATORY DISTRESS SYNDROME
  24. LINEZOLID (MANUFACTURER UNKNOWN) [Suspect]
     Active Substance: LINEZOLID
     Indication: SYSTEMIC INFLAMMATORY RESPONSE SYNDROME
     Route: 065
  25. GANCICLOVIR. [Concomitant]
     Active Substance: GANCICLOVIR
     Indication: ACUTE RESPIRATORY DISTRESS SYNDROME
  26. FOSCARNET [Concomitant]
     Active Substance: FOSCARNET
     Indication: SYSTEMIC INFLAMMATORY RESPONSE SYNDROME
  27. AMIKACIN (MANUFACTURER UNKNOWN) [Suspect]
     Active Substance: AMIKACIN
     Indication: SYSTEMIC INFLAMMATORY RESPONSE SYNDROME
     Route: 065
  28. AMOXICILLIN/CLAVUNALIC ACID (MANUFACTURER UNKNOWN) [Suspect]
     Active Substance: AMOXICILLIN\CLAVULANIC ACID
     Indication: ACUTE RESPIRATORY DISTRESS SYNDROME
  29. PREDNISOLONE. [Suspect]
     Active Substance: PREDNISOLONE
     Indication: PRODUCT USED FOR UNKNOWN INDICATION
  30. ANIDULAFUNGIN [Concomitant]
     Active Substance: ANIDULAFUNGIN
     Indication: ACUTE RESPIRATORY DISTRESS SYNDROME
  31. CEFTAZIDIME (MANUFACTURER UNKNOWN) [Suspect]
     Active Substance: CEFTAZIDIME
     Indication: ACUTE RESPIRATORY DISTRESS SYNDROME
  32. PIPERACILLIN/TAZOBACTAM (MANUFACTURER UNKNOWN) [Suspect]
     Active Substance: PIPERACILLIN SODIUM\TAZOBACTAM SODIUM
     Indication: ACUTE RESPIRATORY DISTRESS SYNDROME
  33. AMOXICILLIN/CLAVUNALIC ACID (MANUFACTURER UNKNOWN) [Suspect]
     Active Substance: AMOXICILLIN\CLAVULANIC ACID
     Indication: SYSTEMIC INFLAMMATORY RESPONSE SYNDROME
     Route: 065
  34. CASPOFUNGIN [Concomitant]
     Active Substance: CASPOFUNGIN
     Indication: SYSTEMIC INFLAMMATORY RESPONSE SYNDROME

REACTIONS (1)
  - Enterocolitis [Not Recovered/Not Resolved]
